FAERS Safety Report 12891204 (Version 7)
Quarter: 2017Q3

REPORT INFORMATION
  Report Type: Report from Study
  Country: BR (occurrence: BR)
  Receive Date: 20161027
  Receipt Date: 20170814
  Transmission Date: 20171127
  Serious: Yes (Hospitalization, Other)
  Sender: FDA-Public Use
  Company Number: PHHY2016BR122003

PATIENT
  Age: 38 Year
  Sex: Female
  Weight: 54 kg

DRUGS (9)
  1. AFINITOR [Suspect]
     Active Substance: EVEROLIMUS
     Dosage: 10 MG, QOD
     Route: 048
     Dates: start: 20170109
  2. CALCIUM [Concomitant]
     Active Substance: CALCIUM
     Indication: METASTASES TO BONE
     Dosage: 1000 MG, QD
     Route: 048
     Dates: start: 2014
  3. AFINITOR [Suspect]
     Active Substance: EVEROLIMUS
     Indication: BREAST CANCER METASTATIC
     Dosage: 10 MG, QD
     Route: 048
     Dates: start: 201411, end: 2014
  4. AROMASIN [Concomitant]
     Active Substance: EXEMESTANE
     Indication: BREAST CANCER
     Dosage: 1 DF, QD
     Route: 048
     Dates: start: 201607
  5. AFINITOR [Suspect]
     Active Substance: EVEROLIMUS
     Dosage: 1 DF, QD
     Route: 048
  6. AFINITOR [Suspect]
     Active Substance: EVEROLIMUS
     Dosage: 10 MG, QOD
     Route: 048
     Dates: start: 20160719
  7. VITAMIN D [Concomitant]
     Active Substance: CHOLECALCIFEROL
     Indication: PRODUCT USED FOR UNKNOWN INDICATION
     Dosage: 7 DRP, QW
     Route: 048
     Dates: start: 2014
  8. AFINITOR [Suspect]
     Active Substance: EVEROLIMUS
     Indication: METASTASES TO BONE
     Dosage: 10 MG, QD
     Route: 048
  9. CALCIUM [Concomitant]
     Active Substance: CALCIUM
     Dosage: 1000 MG, BID
     Route: 048

REACTIONS (41)
  - Nasal dryness [Recovering/Resolving]
  - Acne [Recovering/Resolving]
  - Somnolence [Unknown]
  - Pain in extremity [Unknown]
  - Hypotension [Unknown]
  - Malignant neoplasm progression [Unknown]
  - Headache [Recovering/Resolving]
  - Concomitant disease aggravated [Unknown]
  - Ageusia [Recovering/Resolving]
  - Urinary tract infection [Recovering/Resolving]
  - Blood cholesterol increased [Recovering/Resolving]
  - Dry mouth [Recovering/Resolving]
  - Feeling abnormal [Unknown]
  - Crying [Unknown]
  - Dizziness [Unknown]
  - Paraesthesia oral [Recovering/Resolving]
  - Fatigue [Recovering/Resolving]
  - Abscess [Recovering/Resolving]
  - Memory impairment [Unknown]
  - Pneumonitis [Unknown]
  - Acne pustular [Unknown]
  - Weight decreased [Recovering/Resolving]
  - Product use in unapproved indication [Unknown]
  - Presyncope [Unknown]
  - Asthenia [Unknown]
  - Pyrexia [Recovered/Resolved]
  - Cough [Not Recovered/Not Resolved]
  - Mouth haemorrhage [Recovering/Resolving]
  - Libido decreased [Recovering/Resolving]
  - Depressed mood [Unknown]
  - Hypoaesthesia [Not Recovered/Not Resolved]
  - Pain [Recovering/Resolving]
  - Anaemia [Recovered/Resolved]
  - Stomatitis [Recovering/Resolving]
  - Decreased appetite [Recovering/Resolving]
  - Epistaxis [Recovering/Resolving]
  - Vaginal discharge [Recovering/Resolving]
  - Vulvovaginal dryness [Recovering/Resolving]
  - Gastric disorder [Unknown]
  - Fear of falling [Unknown]
  - Blood count abnormal [Unknown]

NARRATIVE: CASE EVENT DATE: 20161024
